FAERS Safety Report 24135981 (Version 1)
Quarter: 2024Q3

REPORT INFORMATION
  Report Type: Spontaneous
  Country: FR (occurrence: FR)
  Receive Date: 20240725
  Receipt Date: 20240725
  Transmission Date: 20241016
  Serious: Yes (Hospitalization, Other)
  Sender: CHEPLAPHARM
  Company Number: None

PATIENT
  Age: 76 Year
  Sex: Male
  Weight: 69 kg

DRUGS (9)
  1. HYDROXYUREA [Suspect]
     Active Substance: HYDROXYUREA
     Indication: Essential thrombocythaemia
     Dosage: 1 CAPSULE PER DAY?DAILY DOSE: 1 DOSAGE FORM
     Route: 048
     Dates: start: 20240408, end: 20240510
  2. ASPIRIN [Concomitant]
     Active Substance: ASPIRIN
     Dosage: 2 TABLETS A DAY, 100MG MORNING AND EVENING?DAILY DOSE: 2 DOSAGE FORM
     Route: 048
     Dates: start: 20240408
  3. RAMIPRIL [Concomitant]
     Active Substance: RAMIPRIL
     Dosage: 2.5MG MORNING, INTRODUCED 28/02/024?DAILY DOSE: 2.5 MILLIGRAM
     Dates: start: 20240228
  4. LIPTRUZET [Concomitant]
     Active Substance: ATORVASTATIN CALCIUM\EZETIMIBE
     Dosage: 10MG/40MG 1 DAILY, INTRODUCED ON 28/02/024
     Dates: start: 20240228
  5. VESICARE [Concomitant]
     Active Substance: SOLIFENACIN SUCCINATE
     Dosage: 5MG 1 TABLET DAILY?DAILY DOSE: 1 DECADE
  6. DUTASTERIDE [Concomitant]
     Active Substance: DUTASTERIDE
     Dosage: 0.5MG 1 TABLET IN THE MORNING?DAILY DOSE: 1 DOSAGE FORM
  7. DOXAZOSIN MESYLATE [Concomitant]
     Active Substance: DOXAZOSIN MESYLATE
     Dosage: 8MG LP 1 TABLET MORNING?DAILY DOSE: 1 DOSAGE FORM
  8. ALLOPURINOL [Concomitant]
     Active Substance: ALLOPURINOL
     Dosage: 100MG PO DAILY?DAILY DOSE: 100 MILLIGRAM
  9. PRAMIPEXOLE [Concomitant]
     Active Substance: PRAMIPEXOLE\PRAMIPEXOLE DIHYDROCHLORIDE
     Indication: Restless legs syndrome
     Dosage: 0.18MG 1 TABLET NIGHTLY?DAILY DOSE: 0.18 MILLIGRAM

REACTIONS (4)
  - Vascular purpura [Recovered/Resolved]
  - Staphylococcal infection [Unknown]
  - Iatrogenic injury [Unknown]
  - Renal impairment [Unknown]

NARRATIVE: CASE EVENT DATE: 20240430
